FAERS Safety Report 24622898 (Version 1)
Quarter: 2024Q4

REPORT INFORMATION
  Report Type: Spontaneous
  Country: US (occurrence: US)
  Receive Date: 20241115
  Receipt Date: 20241115
  Transmission Date: 20250114
  Serious: Yes (Life-Threatening, Hospitalization)
  Sender: KALEO, INC.
  Company Number: US-Kaleo, Inc.-2024KL000051

PATIENT
  Age: 13 Year
  Sex: Female

DRUGS (1)
  1. AUVI-Q [Suspect]
     Active Substance: EPINEPHRINE
     Indication: Anaphylactic reaction
     Dates: start: 20241025, end: 20241025

REACTIONS (4)
  - Shock [Recovered/Resolved]
  - Drug ineffective [Recovered/Resolved]
  - Device leakage [Not Recovered/Not Resolved]
  - Device audio issue [Not Recovered/Not Resolved]

NARRATIVE: CASE EVENT DATE: 20241025
